FAERS Safety Report 8508671-5 (Version None)
Quarter: 2012Q3

REPORT INFORMATION
  Report Type: 
  Country: None (occurrence: None)
  Receive Date: 20120713
  Receipt Date: 20120710
  Transmission Date: 20120928
  Serious: Yes (Other)
  Sender: FDA-Public Use
  Company Number: CH-PFIZER INC-2012165687

PATIENT
  Age: 53 Year
  Sex: Female

DRUGS (1)
  1. ATORVASTATIN CALCIUM [Suspect]
     Dosage: UNK
     Dates: start: 20120101

REACTIONS (4)
  - POOR QUALITY SLEEP [None]
  - MUSCLE DISORDER [None]
  - ABNORMAL DREAMS [None]
  - DELIRIUM [None]
